FAERS Safety Report 5773819-2 (Version None)
Quarter: 2008Q2

REPORT INFORMATION
  Report Type: 
  Country: None (occurrence: None)
  Receive Date: 20080616
  Receipt Date: 20080604
  Transmission Date: 20081010
  Serious: Yes (Death, Hospitalization)
  Sender: FDA-Public Use
  Company Number: AU-GENENTECH-262423

PATIENT
  Age: 75 Year
  Sex: Female

DRUGS (3)
  1. BEVACIZUMAB [Suspect]
     Indication: NON-SMALL CELL LUNG CANCER
     Dosage: 535 MG, Q3W
     Route: 042
     Dates: start: 20080130, end: 20080401
  2. CARBOPLATIN [Concomitant]
     Indication: NON-SMALL CELL LUNG CANCER
     Dosage: 600 MG, QD
     Dates: start: 20080401, end: 20080401
  3. ETOPOSIDE [Concomitant]
     Indication: NON-SMALL CELL LUNG CANCER
     Dosage: 180 UNK, UNK
     Dates: start: 20080401, end: 20080403

REACTIONS (1)
  - PANCYTOPENIA [None]
